FAERS Safety Report 6051137-5 (Version None)
Quarter: 2009Q1

REPORT INFORMATION
  Report Type: 
  Country: None (occurrence: None)
  Receive Date: 20090121
  Receipt Date: 20090121
  Transmission Date: 20090719
  Serious: Yes (Life-Threatening)
  Sender: FDA-Public Use
  Company Number: None

PATIENT
  Age: 61 Year
  Sex: Female
  Weight: 69.8539 kg

DRUGS (1)
  1. SOMA [Suspect]
     Indication: TEMPOROMANDIBULAR JOINT SYNDROME
     Dosage: 1 TABLET AS NEEDED BUCCAL
     Route: 002
     Dates: start: 20080118, end: 20080118

REACTIONS (3)
  - ANGINA PECTORIS [None]
  - DYSPNOEA [None]
  - TACHYCARDIA [None]
